FAERS Safety Report 18284026 (Version 1)
Quarter: 2020Q3

REPORT INFORMATION
  Report Type: Spontaneous
  Country: IT (occurrence: IT)
  Receive Date: 20200918
  Receipt Date: 20200918
  Transmission Date: 20201103
  Serious: Yes (Other)
  Sender: FDA-Public Use
  Company Number: IT-AMGEN-ITANI2020149417

PATIENT
  Age: 54 Year
  Sex: Female
  Weight: 67 kg

DRUGS (2)
  1. AMGEVITA [Suspect]
     Active Substance: ADALIMUMAB
     Indication: RHEUMATOID ARTHRITIS
     Dosage: 40 MILLIGRAM, CYCLICAL
     Route: 058
     Dates: start: 20190516, end: 20200812
  2. DELTACORTENE [Concomitant]
     Active Substance: PREDNISONE
     Indication: RHEUMATOID ARTHRITIS
     Route: 048
     Dates: start: 20200504

REACTIONS (4)
  - Polyarthritis [Not Recovered/Not Resolved]
  - C-reactive protein increased [Not Recovered/Not Resolved]
  - Drug ineffective [Not Recovered/Not Resolved]
  - Rheumatoid arthritis [Not Recovered/Not Resolved]

NARRATIVE: CASE EVENT DATE: 20200812
